FAERS Safety Report 5699539-0 (Version None)
Quarter: 2008Q2

REPORT INFORMATION
  Report Type: 
  Country: None (occurrence: None)
  Receive Date: 20080410
  Receipt Date: 20080403
  Transmission Date: 20081010
  Serious: Yes (Other)
  Sender: FDA-Public Use
  Company Number: GB-TEVA-168484ISR

PATIENT
  Age: 29 Year
  Sex: Female

DRUGS (6)
  1. NIFEDIPINE [Suspect]
     Indication: PREMATURE LABOUR
  2. CORTICOSTEROIDS [Suspect]
     Indication: PREMATURE LABOUR
  3. CYCLIZINE [Suspect]
     Indication: VOMITING
  4. INTRAVENOUS FLUIDS [Suspect]
     Indication: VOMITING
     Route: 042
  5. MIFEPRISTONE [Suspect]
     Indication: INDUCED LABOUR
  6. MISOPROSTOL [Suspect]
     Indication: INDUCED LABOUR

REACTIONS (2)
  - DRUG EXPOSURE DURING PREGNANCY [None]
  - INTRA-UTERINE DEATH [None]
